FAERS Safety Report 18409120 (Version 1)
Quarter: 2020Q4

REPORT INFORMATION
  Report Type: Spontaneous
  Country: US (occurrence: US)
  Receive Date: 20201020
  Receipt Date: 20201020
  Transmission Date: 20210114
  Serious: Yes (Death)
  Sender: FDA-Public Use
  Company Number: None

PATIENT
  Age: 82 Year
  Sex: Male

DRUGS (11)
  1. ASPIRIN CHW [Concomitant]
  2. LISINOPRIL. [Concomitant]
     Active Substance: LISINOPRIL
  3. CALCITONIN [Concomitant]
     Active Substance: CALCITONIN
  4. CIMZIA [Suspect]
     Active Substance: CERTOLIZUMAB PEGOL
     Indication: RHEUMATOID ARTHRITIS
     Dosage: ?          OTHER FREQUENCY:EVERY 4 WEEKS;?
     Route: 058
     Dates: start: 20180129, end: 20201018
  5. FAMOTIDINE. [Concomitant]
     Active Substance: FAMOTIDINE
  6. ALENDRONATE [Concomitant]
     Active Substance: ALENDRONATE SODIUM
  7. DILTIAZEM. [Concomitant]
     Active Substance: DILTIAZEM
  8. ATORVASTATIN [Concomitant]
     Active Substance: ATORVASTATIN
  9. GABAPENTIN. [Concomitant]
     Active Substance: GABAPENTIN
  10. CHOLESTYRAM [Concomitant]
     Active Substance: CHOLESTYRAMINE
  11. AMIODARONE [Concomitant]
     Active Substance: AMIODARONE

REACTIONS (1)
  - Death [None]

NARRATIVE: CASE EVENT DATE: 20201018
